FAERS Safety Report 8458537-4 (Version None)
Quarter: 2012Q2

REPORT INFORMATION
  Report Type: 
  Country: None (occurrence: None)
  Receive Date: 20120622
  Receipt Date: 20120615
  Transmission Date: 20120825
  Serious: Yes (Hospitalization, Other)
  Sender: FDA-Public Use
  Company Number: US-JNJFOC-20110608965

PATIENT
  Age: 49 Year
  Sex: Female

DRUGS (30)
  1. REMICADE [Suspect]
     Indication: PRODUCT USED FOR UNKNOWN INDICATION
     Route: 042
     Dates: start: 20040121, end: 20061219
  2. RITUXIMAB [Concomitant]
     Dates: start: 20040728
  3. RITUXIMAB [Concomitant]
     Dates: start: 20040121
  4. DEXAMETHASONE [Concomitant]
     Dates: start: 20060419
  5. RITUXIMAB [Concomitant]
     Dates: start: 20040721
  6. CHEMOTHERAPY [Concomitant]
     Dates: start: 20060712
  7. RITUXIMAB [Concomitant]
     Dates: start: 20040714
  8. CYCLOPHOSPHAMIDE [Concomitant]
     Dates: start: 20060510
  9. DOXORUBICIN HCL [Concomitant]
     Dates: start: 20060510
  10. RITUXIMAB [Concomitant]
     Dates: start: 20060419
  11. CHEMOTHERAPY [Concomitant]
     Dates: start: 20060710
  12. CHEMOTHERAPY [Concomitant]
     Dates: start: 20060510
  13. CHEMOTHERAPY [Concomitant]
     Dates: start: 20060228
  14. DOXORUBICIN HCL [Concomitant]
     Dates: start: 20060419
  15. METHOTREXATE [Concomitant]
     Dates: start: 20060510
  16. RITUXIMAB [Concomitant]
     Dates: start: 20040211
  17. RITUXIMAB [Concomitant]
     Dates: start: 20040128
  18. RITUXIMAB [Concomitant]
     Dates: start: 20040204
  19. METHYLPREDNISOLONE [Concomitant]
     Dates: start: 20040121, end: 20040728
  20. RITUXIMAB [Concomitant]
     Dates: start: 20040803
  21. VINCRISTINE SULFATE [Concomitant]
     Dates: start: 20060510
  22. CYCLOPHOSPHAMIDE [Concomitant]
     Dates: start: 20060419
  23. DEXAMETHASONE [Concomitant]
     Dates: start: 20040803
  24. CHEMOTHERAPY [Concomitant]
     Dates: start: 20060419
  25. DEXAMETHASONE [Concomitant]
     Dates: start: 20050126
  26. METHOTREXATE [Concomitant]
     Dates: start: 20060419
  27. RITUXIMAB [Concomitant]
     Dates: start: 20060510
  28. RITUXIMAB [Concomitant]
     Dates: start: 20050126
  29. VINCRISTINE SULFATE [Concomitant]
     Dates: start: 20060419
  30. DEXAMETHASONE [Concomitant]
     Dates: start: 20060510

REACTIONS (1)
  - PROGRESSIVE MULTIFOCAL LEUKOENCEPHALOPATHY [None]
